FAERS Safety Report 20792366 (Version 6)
Quarter: 2022Q3

REPORT INFORMATION
  Report Type: Report from Study
  Country: CN (occurrence: CN)
  Receive Date: 20220505
  Receipt Date: 20220919
  Transmission Date: 20221026
  Serious: Yes (Hospitalization)
  Sender: FDA-Public Use
  Company Number: CN-BRISTOL-MYERS SQUIBB COMPANY-2022-031487

PATIENT
  Age: 74 Year
  Sex: Male
  Weight: 53 kg

DRUGS (6)
  1. PLACEBO [Suspect]
     Active Substance: UNSPECIFIED INGREDIENT
     Indication: Prostate cancer
     Dosage: PRIOR TO THE EVENT ONSET, RECEIVED MOST RECENT DOSE ON 15-APR-2022. MOST RECENT DOSE ON 07-MAY-2022
     Route: 042
     Dates: start: 20211229
  2. DOCETAXEL [Suspect]
     Active Substance: DOCETAXEL
     Indication: Prostate cancer
     Dosage: PRIOR TO THE EVENT ONSET, RECEIVED MOST RECENT DOSE ON 15-APR-2022. MOST RECENT DOSE ON 07-MAY-2022
     Route: 042
     Dates: start: 20211229
  3. DEXAMETHASONE [Concomitant]
     Active Substance: DEXAMETHASONE
     Indication: Product used for unknown indication
     Route: 048
     Dates: start: 20220415
  4. PREDNISONE [Concomitant]
     Active Substance: PREDNISONE
     Indication: Prostate cancer
     Route: 065
     Dates: start: 20211229
  5. PREDNISONE [Concomitant]
     Active Substance: PREDNISONE
     Dosage: PRIOR TO THE EVENT ONSET, RECEIVED MOST RECENT DOSE ON 04-MAR-2022. MOST RECENT DOSE ON 07-MAY-2022
     Route: 065
     Dates: start: 20220415
  6. MOMETASONE FUROATE [Concomitant]
     Active Substance: MOMETASONE FUROATE
     Indication: Immune-mediated dermatitis
     Route: 061
     Dates: start: 20211229, end: 20220506

REACTIONS (1)
  - Lymphadenitis [Recovered/Resolved with Sequelae]

NARRATIVE: CASE EVENT DATE: 20220427
